FAERS Safety Report 12283547 (Version 1)
Quarter: 2016Q2

REPORT INFORMATION
  Report Type: Spontaneous
  Country: US (occurrence: US)
  Receive Date: 20160419
  Receipt Date: 20160419
  Transmission Date: 20160815
  Serious: Yes (Hospitalization)
  Sender: FDA-Public Use
  Company Number: US-B.I. PHARMACEUTICALS,INC./RIDGEFIELD-2016-BI-22801BP

PATIENT
  Sex: Female

DRUGS (1)
  1. DULCO EASE PINK STOOL SOFTENER [Suspect]
     Active Substance: DOCUSATE SODIUM
     Indication: RECTAL PROLAPSE
     Dosage: 3 ANZ
     Route: 048
     Dates: start: 201308

REACTIONS (12)
  - Ulcer haemorrhage [Unknown]
  - Pain [Unknown]
  - Haemorrhage [Unknown]
  - Mood altered [Unknown]
  - Dysstasia [Unknown]
  - Compression fracture [Not Recovered/Not Resolved]
  - Weight decreased [Unknown]
  - Chronic obstructive pulmonary disease [Unknown]
  - Anxiety [Unknown]
  - Off label use [Unknown]
  - Skin disorder [Unknown]
  - Haematoma [Unknown]

NARRATIVE: CASE EVENT DATE: 201308
